FAERS Safety Report 5007980-4 (Version None)
Quarter: 2006Q1

REPORT INFORMATION
  Report Type: 
  Country: None (occurrence: None)
  Receive Date: 20060331
  Receipt Date: 20050726
  Transmission Date: 20060701
  Serious: Yes (Hospitalization)
  Sender: FDA-Public Use
  Company Number: US144071

PATIENT
  Age: 75 Year
  Sex: Female

DRUGS (7)
  1. NEULASTA [Suspect]
     Indication: CHEMOTHERAPY
     Dates: start: 20040807, end: 20050104
  2. NEUPOGEN (FILGRASTIM) (FILGRASTIM) [Concomitant]
  3. ARANESP (DARBEPOETIN ALFA) (DARBEPOETIN ALFA) [Concomitant]
  4. CYCLOPHOSPHAMIDE [Concomitant]
  5. VINCRISTINE SULFATE [Concomitant]
  6. PREDNISONE [Concomitant]
  7. RITUXIMAB [Concomitant]

REACTIONS (1)
  - HEADACHE [None]
